FAERS Safety Report 16095416 (Version 3)
Quarter: 2019Q2

REPORT INFORMATION
  Report Type: Report from Study
  Country: US (occurrence: US)
  Receive Date: 20190320
  Receipt Date: 20190611
  Transmission Date: 20190711
  Serious: No
  Sender: FDA-Public Use
  Company Number: US-BRISTOL-MYERS SQUIBB COMPANY-BMS-2019-026436

PATIENT
  Sex: Female

DRUGS (1)
  1. APIXABAN [Suspect]
     Active Substance: APIXABAN
     Indication: PRODUCT USED FOR UNKNOWN INDICATION
     Route: 048

REACTIONS (9)
  - Cardiac disorder [Unknown]
  - Arthralgia [Unknown]
  - Skin disorder [Recovering/Resolving]
  - Musculoskeletal pain [Unknown]
  - Gait inability [Unknown]
  - Skin haemorrhage [Recovering/Resolving]
  - Bone disorder [Unknown]
  - Eating disorder [Unknown]
  - Contusion [Recovering/Resolving]
